FAERS Safety Report 7564844-X (Version None)
Quarter: 2011Q2

REPORT INFORMATION
  Report Type: 
  Country: None (occurrence: None)
  Receive Date: 20110622
  Receipt Date: 20110131
  Transmission Date: 20111010
  Serious: Yes (Other)
  Sender: FDA-Public Use
  Company Number: US-MYLANLABS-2011S1000061

PATIENT
  Age: 59 Year
  Sex: Female

DRUGS (5)
  1. CLOZAPINE [Suspect]
     Dates: start: 20030908, end: 20101230
  2. CLOZAPINE [Suspect]
     Route: 048
     Dates: start: 20110103
  3. CLOZAPINE [Suspect]
     Route: 048
     Dates: start: 20110103
  4. CLOZAPINE [Suspect]
     Indication: SCHIZOAFFECTIVE DISORDER BIPOLAR TYPE
     Dates: start: 20030908, end: 20101230
  5. LITHIUM CARBONATE [Concomitant]

REACTIONS (1)
  - GRANULOCYTOPENIA [None]
